FAERS Safety Report 7775437-3 (Version None)
Quarter: 2011Q3

REPORT INFORMATION
  Report Type: 
  Country: None (occurrence: None)
  Receive Date: 20110921
  Receipt Date: 20110906
  Transmission Date: 20111222
  Serious: Yes (Other)
  Sender: FDA-Public Use
  Company Number: HA11-224-AE

PATIENT
  Sex: Female

DRUGS (3)
  1. NAPROXEN [Suspect]
     Dosage: ORAL
     Route: 048
     Dates: end: 20110816
  2. LYRICA [Suspect]
     Indication: NEURALGIA
     Dosage: 275 MG
     Dates: start: 20080101, end: 20110816
  3. LYRICA [Suspect]
     Indication: PAIN
     Dosage: 275 MG
     Dates: start: 20080101, end: 20110816

REACTIONS (6)
  - FEELING ABNORMAL [None]
  - MALAISE [None]
  - SLEEP DISORDER [None]
  - LOSS OF CONSCIOUSNESS [None]
  - FEAR [None]
  - DRUG INTERACTION [None]
